FAERS Safety Report 14527097 (Version 1)
Quarter: 2018Q1

REPORT INFORMATION
  Report Type: Spontaneous
  Country: US (occurrence: US)
  Receive Date: 20180212
  Receipt Date: 20180212
  Transmission Date: 20180509
  Serious: Yes (Disabling)
  Sender: FDA-Public Use
  Company Number: None

PATIENT
  Age: 70 Year
  Weight: 48.6 kg

DRUGS (2)
  1. ALENDRONATE [Suspect]
     Active Substance: ALENDRONATE SODIUM
     Indication: OSTEOPENIA
     Dosage: ?          QUANTITY:1 TABLET(S);OTHER FREQUENCY:1 X P. WEEK;?
     Route: 048
     Dates: start: 20180210, end: 20180212
  2. VITAMIN D [Concomitant]
     Active Substance: CHOLECALCIFEROL

REACTIONS (6)
  - Nausea [None]
  - Dizziness [None]
  - Diarrhoea [None]
  - Myalgia [None]
  - Musculoskeletal pain [None]
  - Neck pain [None]

NARRATIVE: CASE EVENT DATE: 20180210
